FAERS Safety Report 12212084 (Version 1)
Quarter: 2016Q1

REPORT INFORMATION
  Report Type: Spontaneous
  Country: JP (occurrence: JP)
  Receive Date: 20160325
  Receipt Date: 20160325
  Transmission Date: 20160526
  Serious: Yes (Death)
  Sender: FDA-Public Use
  Company Number: JP-PFIZER INC-2016164916

PATIENT
  Age: 67 Year
  Sex: Female
  Weight: 57.8 kg

DRUGS (19)
  1. INLYTA [Suspect]
     Active Substance: AXITINIB
     Dosage: 10 MG, 1X/DAY
     Route: 048
     Dates: start: 20151006, end: 20160104
  2. MAGNESIUM OXIDE. [Concomitant]
     Active Substance: MAGNESIUM OXIDE
     Dosage: 330 MG, UNK
     Route: 048
     Dates: start: 20150918
  3. OLMETEC [Concomitant]
     Active Substance: OLMESARTAN MEDOXOMIL
     Dosage: 20 MG, UNK
     Route: 048
  4. PARIET [Concomitant]
     Active Substance: RABEPRAZOLE SODIUM
     Dosage: 10 MG, UNK
     Route: 048
     Dates: start: 20150723
  5. MEDICON /00048102/ [Concomitant]
     Active Substance: DEXTROMETHORPHAN HYDROBROMIDE
     Dosage: 15 MG, UNK
     Route: 048
     Dates: start: 20150915
  6. PLAVIX [Concomitant]
     Active Substance: CLOPIDOGREL BISULFATE
     Dosage: 75 MG, UNK
     Route: 048
     Dates: start: 20110519
  7. FUROSEMIDE. [Concomitant]
     Active Substance: FUROSEMIDE
     Dosage: 20 MG, UNK
     Route: 048
  8. INLYTA [Suspect]
     Active Substance: AXITINIB
     Dosage: 20 MG, 1X/DAY
     Route: 048
     Dates: start: 20160119, end: 20160225
  9. SP TROCHE [Concomitant]
     Active Substance: DEQUALINIUM CHLORIDE
     Dosage: UNK UNK, 2X/DAY
     Route: 048
     Dates: start: 20160130
  10. DECADRON [Concomitant]
     Active Substance: DEXAMETHASONE
     Dosage: 10 MG, UNK
     Route: 048
     Dates: start: 20150723
  11. BAYASPIRIN [Concomitant]
     Active Substance: ASPIRIN
     Dosage: UNK
     Route: 048
  12. AMLODIN [Concomitant]
     Active Substance: AMLODIPINE BESYLATE
     Dosage: 10 MG, UNK
     Route: 048
  13. AMBROXOL HCL [Concomitant]
     Active Substance: AMBROXOL HYDROCHLORIDE
     Dosage: 15 MG, UNK
     Route: 048
     Dates: start: 20150918
  14. INLYTA [Suspect]
     Active Substance: AXITINIB
     Dosage: 14 MG, 1X/DAY
     Route: 048
     Dates: start: 20160105, end: 20160118
  15. SENNOSIDES. [Concomitant]
     Active Substance: SENNOSIDES
     Dosage: UNK
     Route: 048
  16. ATORVASTATIN [Concomitant]
     Active Substance: ATORVASTATIN
     Dosage: 10 MG, UNK
     Route: 048
     Dates: start: 20150226
  17. ONETRAM [Concomitant]
     Active Substance: TRAMADOL HYDROCHLORIDE
     Dosage: 100 MG, UNK
     Route: 048
     Dates: start: 20150912
  18. NAIXAN /00256201/ [Concomitant]
     Active Substance: NAPROXEN
     Dosage: 100 MG, UNK
     Route: 048
     Dates: start: 20150913
  19. THYRADIN S [Concomitant]
     Active Substance: LEVOTHYROXINE SODIUM
     Dosage: 25 MG, UNK
     Route: 048

REACTIONS (1)
  - Stomatitis [Fatal]

NARRATIVE: CASE EVENT DATE: 20160130
